FAERS Safety Report 8083287-6 (Version None)
Quarter: 2012Q1

REPORT INFORMATION
  Report Type: 
  Country: None (occurrence: None)
  Receive Date: 20120127
  Receipt Date: 20110310
  Transmission Date: 20120608
  Serious: No
  Sender: FDA-Public Use
  Company Number: US-ABBOTT-11P-163-0710614-00

PATIENT
  Age: 29 Year
  Sex: Female

DRUGS (2)
  1. PAMELOR [Concomitant]
     Indication: DEPRESSION
     Route: 048
  2. HUMIRA [Suspect]
     Indication: CROHN'S DISEASE
     Dates: start: 20100320

REACTIONS (4)
  - FATIGUE [None]
  - RHINORRHOEA [None]
  - SNEEZING [None]
  - NASOPHARYNGITIS [None]
